FAERS Safety Report 6271375-6 (Version None)
Quarter: 2009Q3

REPORT INFORMATION
  Report Type: 
  Country: None (occurrence: None)
  Receive Date: 20090717
  Receipt Date: 20090707
  Transmission Date: 20100115
  Serious: Yes (Other)
  Sender: FDA-Public Use
  Company Number: PT-ROCHE-636841

PATIENT
  Sex: Male

DRUGS (15)
  1. MIRCERA [Suspect]
     Route: 058
     Dates: start: 20090528, end: 20090528
  2. VASTAREL LM [Concomitant]
  3. INDERAL [Concomitant]
  4. ANAFRANIL [Concomitant]
  5. AMLODIPINE [Concomitant]
  6. RISIDON [Concomitant]
  7. BETASERC [Concomitant]
  8. FLUDEX [Concomitant]
  9. IMDUR [Concomitant]
  10. CORDARONE [Concomitant]
  11. PLAVIX [Concomitant]
  12. LORAZEPAM [Concomitant]
  13. ZYLORIC [Concomitant]
  14. LISINOPRIL [Concomitant]
  15. PRAVASTATIN [Concomitant]

REACTIONS (1)
  - ANGIOEDEMA [None]
